FAERS Safety Report 5051970-2 (Version None)
Quarter: 2006Q3

REPORT INFORMATION
  Report Type: 
  Country: None (occurrence: None)
  Receive Date: 20060711
  Receipt Date: 20060616
  Transmission Date: 20061208
  Serious: Yes (Other)
  Sender: FDA-Public Use
  Company Number: US200606004081

PATIENT
  Sex: Male

DRUGS (4)
  1. CIALIS [Suspect]
     Indication: ERECTILE DYSFUNCTION
     Dosage: 5 MG
     Dates: start: 20060615
  2. RANITIDINE [Concomitant]
  3. KLONOPIN [Concomitant]
  4. TEGRETOL [Concomitant]

REACTIONS (2)
  - HALLUCINATION, AUDITORY [None]
  - TINNITUS [None]
